FAERS Safety Report 25891274 (Version 2)
Quarter: 2025Q4

REPORT INFORMATION
  Report Type: Spontaneous
  Country: CA (occurrence: CA)
  Receive Date: 20251007
  Receipt Date: 20251124
  Transmission Date: 20260118
  Serious: Yes (Death, Other)
  Sender: PFIZER
  Company Number: CA-PFIZER INC-202500197435

PATIENT
  Age: 58 Year
  Sex: Female

DRUGS (1)
  1. RUXIENCE [Suspect]
     Active Substance: RITUXIMAB-PVVR
     Indication: Scleroderma
     Dosage: 1000 MG, DAY 1 AND 15
     Route: 042
     Dates: start: 20250122, end: 20250205

REACTIONS (1)
  - Death [Fatal]

NARRATIVE: CASE EVENT DATE: 20250917
